FAERS Safety Report 22190575 (Version 1)
Quarter: 2023Q2

REPORT INFORMATION
  Report Type: Spontaneous
  Country: US (occurrence: US)
  Receive Date: 20230410
  Receipt Date: 20230410
  Transmission Date: 20230722
  Serious: Yes (Other)
  Sender: FDA-Public Use
  Company Number: US-CIPLA LTD.-2023US01866

PATIENT

DRUGS (1)
  1. WARFARIN [Suspect]
     Active Substance: WARFARIN
     Indication: Embolism venous
     Dosage: UNK
     Route: 065

REACTIONS (3)
  - Coagulopathy [Unknown]
  - Retroperitoneal haemorrhage [Unknown]
  - Anticoagulation drug level above therapeutic [Unknown]
